FAERS Safety Report 6186348-1 (Version None)
Quarter: 2009Q2

REPORT INFORMATION
  Report Type: 
  Country: None (occurrence: None)
  Receive Date: 20090511
  Receipt Date: 20090428
  Transmission Date: 20091009
  Serious: Yes (Life-Threatening, Hospitalization, Disabling, Other)
  Sender: FDA-Public Use
  Company Number: BR-PFIZER INC-2008038092

PATIENT
  Age: 53 Year

DRUGS (1)
  1. CHAMPIX [Suspect]
     Indication: NICOTINE DEPENDENCE
     Dosage: 0.5 MG, 1X/DAY
     Route: 048
     Dates: start: 20080401, end: 20080401

REACTIONS (9)
  - ACTIVITIES OF DAILY LIVING IMPAIRED [None]
  - NEGATIVE THOUGHTS [None]
  - PAIN [None]
  - PANIC DISORDER [None]
  - SENSORY LOSS [None]
  - SUICIDAL IDEATION [None]
  - SUICIDE ATTEMPT [None]
  - SYNCOPE [None]
  - WEIGHT INCREASED [None]
